FAERS Safety Report 9907357 (Version 2)
Quarter: 2014Q1

REPORT INFORMATION
  Report Type: Spontaneous
  Country: US (occurrence: US)
  Receive Date: 20140218
  Receipt Date: 20140305
  Transmission Date: 20141002
  Serious: Yes (Other)
  Sender: FDA-Public Use
  Company Number: US-RB-063458-14

PATIENT
  Age: 60 Year
  Sex: Male

DRUGS (4)
  1. SUBOXONE FILM [Suspect]
     Indication: DRUG DEPENDENCE
     Dosage: SUBOXONE FILM
     Route: 060
     Dates: start: 2011
  2. SUBOXONE FILM [Suspect]
     Dosage: SUBOXONE FILM
     Route: 060
     Dates: end: 2013
  3. SUBOXONE FILM [Suspect]
     Dosage: SUBOXONE FILM; TAKING INCREASED DOSE AT TIMES; DOSING DETAILS UNKNOWN
     Route: 060
     Dates: start: 2013
  4. NICOTINE [Suspect]
     Indication: NICOTINE DEPENDENCE
     Dosage: TAKING 2 PACKS PER DAY
     Route: 055
     Dates: end: 201401

REACTIONS (9)
  - Wrong technique in drug usage process [Not Recovered/Not Resolved]
  - Dysphagia [Not Recovered/Not Resolved]
  - Extra dose administered [Not Recovered/Not Resolved]
  - Throat cancer [Not Recovered/Not Resolved]
  - Oropharyngeal pain [Not Recovered/Not Resolved]
  - Pain [Not Recovered/Not Resolved]
  - Burning sensation [Not Recovered/Not Resolved]
  - Purulent discharge [Not Recovered/Not Resolved]
  - Oral mucosal blistering [Not Recovered/Not Resolved]
